FAERS Safety Report 17684258 (Version 3)
Quarter: 2020Q3

REPORT INFORMATION
  Report Type: Other
  Country: US (occurrence: US)
  Receive Date: 20200420
  Receipt Date: 20200816
  Transmission Date: 20201102
  Serious: Yes (Other)
  Sender: FDA-Public Use
  Company Number: US-ROCHE-2583503

PATIENT
  Sex: Male
  Weight: 110.32 kg

DRUGS (5)
  1. ACTEMRA [Suspect]
     Active Substance: TOCILIZUMAB
     Indication: GIANT CELL ARTERITIS
     Dosage: INJECT 162MG SUBCUTANEOUSLY EVERY WEEK
     Route: 058
  2. ACTEMRA [Suspect]
     Active Substance: TOCILIZUMAB
     Indication: AORTIC ANEURYSM RUPTURE
  3. ACTEMRA [Suspect]
     Active Substance: TOCILIZUMAB
     Indication: EMBOLISM
  4. ACTEMRA [Suspect]
     Active Substance: TOCILIZUMAB
     Indication: BACK PAIN
  5. ACTEMRA [Suspect]
     Active Substance: TOCILIZUMAB
     Indication: DEEP VEIN THROMBOSIS

REACTIONS (6)
  - Vena cava filter insertion [Unknown]
  - Walking aid user [Unknown]
  - Thrombosis [Unknown]
  - Intervertebral disc protrusion [Unknown]
  - Orthosis user [Unknown]
  - Aortic aneurysm repair [Unknown]
